FAERS Safety Report 7279656-4 (Version None)
Quarter: 2011Q1

REPORT INFORMATION
  Report Type: 
  Country: None (occurrence: None)
  Receive Date: 20110203
  Receipt Date: 20110203
  Transmission Date: 20110831
  Serious: Yes (Death)
  Sender: FDA-Public Use
  Company Number: None

PATIENT
  Age: 85 Year
  Sex: Male
  Weight: 79 kg

DRUGS (1)
  1. RASBURICASE [Suspect]
     Indication: MULTIPLE MYELOMA
     Dosage: 6 MG ONCE IV
     Route: 042
     Dates: start: 20101223, end: 20101223

REACTIONS (5)
  - METHAEMOGLOBINAEMIA [None]
  - BLOOD CREATININE INCREASED [None]
  - HAEMOLYSIS [None]
  - GLUCOSE-6-PHOSPHATE DEHYDROGENASE DEFICIENCY [None]
  - DIALYSIS [None]
